FAERS Safety Report 13791004 (Version 5)
Quarter: 2017Q3

REPORT INFORMATION
  Report Type: Report from Study
  Country: US (occurrence: US)
  Receive Date: 20170725
  Receipt Date: 20170911
  Transmission Date: 20171127
  Serious: Yes (Hospitalization, Other)
  Sender: FDA-Public Use
  Company Number: US-GILEAD-2017-0284623

PATIENT
  Age: 49 Year
  Sex: Male

DRUGS (13)
  1. AMBRISENTAN [Suspect]
     Active Substance: AMBRISENTAN
     Indication: SARCOIDOSIS
  2. BENAZEPRIL [Concomitant]
     Active Substance: BENAZEPRIL HYDROCHLORIDE
  3. ALBUTEROL                          /00139501/ [Concomitant]
     Active Substance: ALBUTEROL
  4. PREDNISONE. [Concomitant]
     Active Substance: PREDNISONE
  5. JANUMET [Concomitant]
     Active Substance: METFORMIN HYDROCHLORIDE\SITAGLIPTIN PHOSPHATE
  6. FUROSEMIDE. [Concomitant]
     Active Substance: FUROSEMIDE
  7. AMBRISENTAN [Suspect]
     Active Substance: AMBRISENTAN
     Indication: INTERSTITIAL LUNG DISEASE
  8. ATORVASTATIN [Concomitant]
     Active Substance: ATORVASTATIN
  9. AMLODIPINE [Concomitant]
     Active Substance: AMLODIPINE BESYLATE
  10. HYDROCODONE/ACETAMINOPHEN          /00607101/ [Concomitant]
  11. AMBRISENTAN [Suspect]
     Active Substance: AMBRISENTAN
     Indication: PULMONARY HYPERTENSION
     Dosage: 10 MG, QD
     Route: 065
  12. ADVAIR [Concomitant]
  13. SILDENAFIL. [Concomitant]
     Active Substance: SILDENAFIL

REACTIONS (4)
  - Oxygen saturation decreased [Recovered/Resolved]
  - Dyspnoea [Unknown]
  - Sarcoidosis [Not Recovered/Not Resolved]
  - Drug ineffective [Not Recovered/Not Resolved]
